FAERS Safety Report 5500112-5 (Version None)
Quarter: 2007Q4

REPORT INFORMATION
  Report Type: 
  Country: None (occurrence: None)
  Receive Date: 20071024
  Receipt Date: 20071017
  Transmission Date: 20080405
  Serious: Yes (Hospitalization)
  Sender: FDA-Public Use
  Company Number: SPV1-2007-04539

PATIENT
  Age: 78 Year
  Sex: Female

DRUGS (1)
  1. ANAGRELIDE HYDROCHLORIDE [Suspect]
     Indication: ESSENTIAL THROMBOCYTHAEMIA
     Dosage: 0.5 MG, 4X/DAY:QID, ORAL
     Route: 048
     Dates: start: 20070629, end: 20070925

REACTIONS (2)
  - DRUG INEFFECTIVE [None]
  - VASCULITIS NECROTISING [None]
